FAERS Safety Report 13942889 (Version 7)
Quarter: 2023Q2

REPORT INFORMATION
  Report Type: Report from Study
  Country: JP (occurrence: JP)
  Receive Date: 20170907
  Receipt Date: 20230420
  Transmission Date: 20230721
  Serious: Yes (Other)
  Sender: FDA-Public Use
  Company Number: JP-PFIZER INC-2017384856

PATIENT
  Sex: Female
  Weight: 6.1 kg

DRUGS (10)
  1. SIROLIMUS [Interacting]
     Active Substance: SIROLIMUS
     Indication: Haemangioma-thrombocytopenia syndrome
     Dosage: 0.56 MG, 1X/DAY
     Route: 065
     Dates: start: 20160210, end: 20160512
  2. SIROLIMUS [Interacting]
     Active Substance: SIROLIMUS
     Indication: Infantile haemangioma
     Dosage: 0.8 MG, 1X/DAY
     Route: 065
     Dates: start: 20160513, end: 20160912
  3. SIROLIMUS [Interacting]
     Active Substance: SIROLIMUS
     Dosage: 1.6 MG, 1X/DAY
     Route: 065
     Dates: start: 20160913, end: 20170219
  4. FLUCONAZOLE [Interacting]
     Active Substance: FLUCONAZOLE
     Indication: Prophylaxis
     Dosage: UNK
     Route: 048
     Dates: start: 20161004, end: 20161202
  5. FLUCONAZOLE [Interacting]
     Active Substance: FLUCONAZOLE
     Indication: Hyperlipidaemia
  6. PREDONINE [Concomitant]
     Active Substance: PREDNISOLONE
     Indication: Haemangioma-thrombocytopenia syndrome
     Dosage: UNK (POWDER)
     Route: 048
     Dates: start: 20160802
  7. PREDONINE [Concomitant]
     Active Substance: PREDNISOLONE
     Indication: Infantile haemangioma
  8. FAMOTIDINE [Concomitant]
     Active Substance: FAMOTIDINE
     Indication: Prophylaxis
     Dosage: UNK
     Route: 048
     Dates: start: 20160802
  9. SULFAMETHOXAZOLE\TRIMETHOPRIM [Concomitant]
     Active Substance: SULFAMETHOXAZOLE\TRIMETHOPRIM
     Indication: Prophylaxis
     Dosage: UNK
     Route: 048
  10. ALFAROL [Concomitant]
     Active Substance: ALFACALCIDOL
     Indication: Prophylaxis
     Dosage: UNK
     Route: 048
     Dates: end: 20160802

REACTIONS (9)
  - Hypogammaglobulinaemia [Recovered/Resolved]
  - Cellulitis [Recovered/Resolved]
  - Pharyngitis [Recovered/Resolved]
  - Pharyngitis [Recovered/Resolved]
  - Eczema infantile [Recovered/Resolved]
  - Pharyngitis [Recovered/Resolved]
  - Hyperlipidaemia [Recovered/Resolved]
  - Potentiating drug interaction [Recovered/Resolved]
  - Off label use [Unknown]

NARRATIVE: CASE EVENT DATE: 20160210
